FAERS Safety Report 9701220 (Version 2)
Quarter: 2015Q3

REPORT INFORMATION
  Report Type: Spontaneous
  Country: US (occurrence: US)
  Receive Date: 20131121
  Receipt Date: 20150803
  Transmission Date: 20151125
  Serious: No
  Sender: FDA-Public Use
  Company Number: US-GILEAD-2008-0016126

PATIENT
  Age: 76 Year
  Sex: Female
  Weight: 83.46 kg

DRUGS (4)
  1. LETAIRIS [Suspect]
     Active Substance: AMBRISENTAN
     Indication: PULMONARY ARTERIAL HYPERTENSION
     Route: 048
     Dates: start: 20080329
  2. CHOLESTEROL OFF [Concomitant]
     Route: 048
  3. CVS FISH OIL [Concomitant]
     Route: 048
  4. CENTRUM SILVER [Concomitant]
     Active Substance: VITAMINS
     Route: 048

REACTIONS (1)
  - Abdominal pain upper [Unknown]
